FAERS Safety Report 4599903-7 (Version None)
Quarter: 2005Q1

REPORT INFORMATION
  Report Type: 
  Country: None (occurrence: None)
  Receive Date: 20050303
  Receipt Date: 20050215
  Transmission Date: 20050727
  Serious: Yes (Other)
  Sender: FDA-Public Use
  Company Number: FR_041005090

PATIENT
  Age: 62 Year
  Weight: 73 kg

DRUGS (1)
  1. CIALIS [Suspect]
     Indication: ERECTILE DYSFUNCTION
     Dosage: 1 DSG FORM/1 AS NEEDED

REACTIONS (1)
  - GLOBAL AMNESIA [None]
